FAERS Safety Report 21132208 (Version 1)
Quarter: 2022Q3

REPORT INFORMATION
  Report Type: Spontaneous
  Country: DE (occurrence: None)
  Receive Date: 20220726
  Receipt Date: 20220726
  Transmission Date: 20221027
  Serious: Yes (Congenital Anomaly)
  Sender: FDA-Public Use
  Company Number: 2022A257819

PATIENT
  Age: 1 Day
  Sex: Male
  Weight: 3.3 kg

DRUGS (5)
  1. SYMBICORT [Suspect]
     Active Substance: BUDESONIDE\FORMOTEROL FUMARATE DIHYDRATE
     Indication: Asthma
     Dosage: 160 [UG/D ] / 4.5 [UG/D ]/ PROBABLY THE ENTIRE PREGNANCY.
     Route: 064
     Dates: start: 20210407, end: 20210611
  2. COMIRNATY [Suspect]
     Active Substance: TOZINAMERAN
     Indication: COVID-19 immunisation
     Route: 064
     Dates: start: 20210518, end: 20210518
  3. VAXZEVRIA [Concomitant]
     Active Substance: AZD-1222
     Indication: COVID-19 immunisation
     Route: 064
  4. COMIRNATY [Concomitant]
     Active Substance: TOZINAMERAN
     Indication: COVID-19 immunisation
     Route: 064
     Dates: start: 20211123, end: 20211123
  5. MISOPROSTOL [Concomitant]
     Active Substance: MISOPROSTOL
     Indication: Labour induction
     Route: 064

REACTIONS (3)
  - Foetal exposure during pregnancy [Unknown]
  - Polydactyly [Unknown]
  - Syndactyly [Unknown]

NARRATIVE: CASE EVENT DATE: 20220101
